FAERS Safety Report 10310924 (Version 1)
Quarter: 2014Q3

REPORT INFORMATION
  Report Type: Spontaneous
  Country: FR (occurrence: FR)
  Receive Date: 20140717
  Receipt Date: 20140717
  Transmission Date: 20150326
  Serious: Yes (Other)
  Sender: FDA-Public Use
  Company Number: FR-009507513-1407FRA005536

PATIENT
  Age: 84 Year
  Sex: Male

DRUGS (7)
  1. CARDENSIEL [Concomitant]
     Active Substance: BISOPROLOL FUMARATE
  2. TAHOR [Concomitant]
     Active Substance: ATORVASTATIN CALCIUM
  3. NATISPRAY [Concomitant]
     Active Substance: NITROGLYCERIN
  4. EZETROL [Concomitant]
     Active Substance: EZETIMIBE
  5. EMEND [Suspect]
     Active Substance: APREPITANT
     Indication: PROPHYLAXIS OF NAUSEA AND VOMITING
     Dosage: UNK
     Route: 048
     Dates: start: 20140417, end: 20140615
  6. PRADAXA [Concomitant]
     Active Substance: DABIGATRAN ETEXILATE MESYLATE
  7. COVERSYL (PERINDOPRIL ARGININE) [Concomitant]
     Active Substance: PERINDOPRIL

REACTIONS (2)
  - Photodermatosis [Recovering/Resolving]
  - Dermatitis bullous [Recovering/Resolving]

NARRATIVE: CASE EVENT DATE: 201406
